FAERS Safety Report 16756476 (Version 1)
Quarter: 2019Q3

REPORT INFORMATION
  Report Type: Spontaneous
  Country: US (occurrence: US)
  Receive Date: 20190829
  Receipt Date: 20190829
  Transmission Date: 20191005
  Serious: Yes (Hospitalization, Other)
  Sender: FDA-Public Use
  Company Number: US-ASTRAZENECA-2019SF22597

PATIENT
  Age: 49 Year
  Sex: Male

DRUGS (2)
  1. NEXIUM [Suspect]
     Active Substance: ESOMEPRAZOLE MAGNESIUM
     Indication: GASTROOESOPHAGEAL REFLUX DISEASE
     Dosage: UNKNOWN
     Route: 048
     Dates: start: 1997
  2. NEXIUM 24HR [Suspect]
     Active Substance: ESOMEPRAZOLE MAGNESIUM
     Indication: GASTROOESOPHAGEAL REFLUX DISEASE
     Dosage: 22.3 MG, 1X/DAY (22.3 MG ONE IN MORNING DAILY BY MOUTH)
     Route: 048
     Dates: end: 2014

REACTIONS (15)
  - Immune thrombocytopenic purpura [Unknown]
  - Petechiae [Unknown]
  - Hyperchlorhydria [Not Recovered/Not Resolved]
  - Visual impairment [Unknown]
  - Blood test abnormal [Unknown]
  - White blood cell count increased [Unknown]
  - Hepatotoxicity [Unknown]
  - Fatigue [Unknown]
  - Dyspepsia [Unknown]
  - Infection [Unknown]
  - Hepatitis [Unknown]
  - Liver function test increased [Not Recovered/Not Resolved]
  - Platelet count decreased [Not Recovered/Not Resolved]
  - Red blood cell count decreased [Unknown]
  - Gastric disorder [Unknown]

NARRATIVE: CASE EVENT DATE: 2014
